FAERS Safety Report 25979668 (Version 1)
Quarter: 2025Q4

REPORT INFORMATION
  Report Type: Spontaneous
  Country: EU (occurrence: EU)
  Receive Date: 20251030
  Receipt Date: 20251030
  Transmission Date: 20260118
  Serious: Yes (Life-Threatening, Hospitalization)
  Sender: MERCK SHARP & DOHME LLC
  Company Number: None

PATIENT
  Age: 71 Year
  Sex: Female
  Weight: 61 kg

DRUGS (4)
  1. KEYTRUDA [Suspect]
     Active Substance: PEMBROLIZUMAB
     Indication: Invasive ductal breast carcinoma
     Dosage: TIME INTERVAL: CYCLICAL: IN CYCLES, AT A DOSE OF 200MG EACH CYCLE
     Route: 042
     Dates: start: 20250805, end: 20250930
  2. DEXAMETHASONE [Concomitant]
     Active Substance: DEXAMETHASONE
     Indication: Chemotherapy side effect prophylaxis
     Dosage: TIME INTERVAL: CYCLICAL: 12 MG WITH EACH CYCLE
     Route: 042
     Dates: start: 20250805, end: 20250930
  3. CYCLOPHOSPHAMIDE [Suspect]
     Active Substance: CYCLOPHOSPHAMIDE
     Indication: Invasive ductal breast carcinoma
     Dosage: TIME INTERVAL: CYCLICAL: IN CYCLES AT A DOSE OF 600MG/M2
     Route: 042
     Dates: start: 20250805, end: 20250930
  4. DOXORUBICIN HYDROCHLORIDE [Suspect]
     Active Substance: DOXORUBICIN HYDROCHLORIDE
     Indication: Invasive ductal breast carcinoma
     Dosage: TIME INTERVAL: CYCLICAL: IN CYCLES, AT DOSES OF 60MG/M2
     Route: 042
     Dates: start: 20250805, end: 20250930

REACTIONS (2)
  - Pancytopenia [Recovering/Resolving]
  - Agranulocytosis [Recovering/Resolving]

NARRATIVE: CASE EVENT DATE: 20251008
